FAERS Safety Report 5422230-2 (Version None)
Quarter: 2007Q3

REPORT INFORMATION
  Report Type: 
  Country: None (occurrence: None)
  Receive Date: 20070820
  Receipt Date: 20070820
  Transmission Date: 20080115
  Serious: Yes (Hospitalization)
  Sender: FDA-Public Use
  Company Number: None

PATIENT
  Sex: Male
  Weight: 43.7 kg

DRUGS (1)
  1. DETROL LA [Suspect]
     Indication: AUTOMATIC BLADDER
     Dosage: 4 MG BID PO
     Route: 048
     Dates: start: 20060901, end: 20070106

REACTIONS (4)
  - AGITATION [None]
  - HALLUCINATION, AUDITORY [None]
  - HALLUCINATION, VISUAL [None]
  - SOMATIC HALLUCINATION [None]
